FAERS Safety Report 8943393 (Version 1)
Quarter: 2012Q4

REPORT INFORMATION
  Report Type: 
  Country: CA (occurrence: CA)
  Receive Date: 20121203
  Receipt Date: 20121203
  Transmission Date: 20130627
  Serious: Yes (Hospitalization)
  Sender: FDA-Public Use
  Company Number: CA-B.I. PHARMACEUTICALS,INC./RIDGEFIELD-2012-CN-02419CN

PATIENT
  Age: 82 Year
  Sex: Female
  Weight: 66 kg

DRUGS (9)
  1. PRADAX [Suspect]
     Dosage: 220 mg
     Route: 048
  2. ASA [Concomitant]
  3. AZARGA [Concomitant]
  4. BISOPROLOL [Concomitant]
  5. COVERSYL [Concomitant]
  6. LUMIGAN [Concomitant]
  7. PANTOLOC [Concomitant]
  8. SIMVASTATIN [Concomitant]
  9. TRIAMTERENE + HYDROCHLOROTHIAZIDE [Concomitant]

REACTIONS (6)
  - Abdominal pain [Recovered/Resolved]
  - Anaemia [Recovered/Resolved]
  - Chest pain [Recovered/Resolved]
  - Diarrhoea [Recovered/Resolved]
  - Dyspnoea [Recovered/Resolved]
  - Faeces discoloured [Recovered/Resolved]
